FAERS Safety Report 10447053 (Version 1)
Quarter: 2014Q3

REPORT INFORMATION
  Report Type: Spontaneous
  Country: DE (occurrence: DE)
  Receive Date: 20140911
  Receipt Date: 20140911
  Transmission Date: 20150326
  Serious: Yes (Life-Threatening, Hospitalization, Other)
  Sender: FDA-Public Use
  Company Number: DE-TEVA-506149GER

PATIENT
  Sex: Female
  Weight: 74 kg

DRUGS (1)
  1. RATIOGRASTIM 30 MIO I.E./0.5 ML [Suspect]
     Active Substance: FILGRASTIM
     Indication: PRIMARY MEDIASTINAL LARGE B-CELL LYMPHOMA
     Route: 058
     Dates: start: 20140824

REACTIONS (7)
  - Circulatory collapse [Recovered/Resolved]
  - Tachypnoea [Recovered/Resolved]
  - Diarrhoea [Recovered/Resolved]
  - Drug hypersensitivity [Recovered/Resolved]
  - Angina pectoris [Recovered/Resolved]
  - Erythema [Recovered/Resolved]
  - Pyrexia [Recovered/Resolved]

NARRATIVE: CASE EVENT DATE: 201408
